FAERS Safety Report 7751914-6 (Version None)
Quarter: 2011Q3

REPORT INFORMATION
  Report Type: 
  Country: None (occurrence: None)
  Receive Date: 20110914
  Receipt Date: 20110914
  Transmission Date: 20111222
  Serious: Yes (Other)
  Sender: FDA-Public Use
  Company Number: None

PATIENT
  Sex: Female

DRUGS (1)
  1. ADVAIR DISKUS 500/50 [Suspect]
     Dosage: 1 INHALATION BID
     Dates: start: 20110901

REACTIONS (2)
  - RESPIRATORY DISORDER [None]
  - PRODUCT QUALITY ISSUE [None]
